FAERS Safety Report 4914211-X (Version None)
Quarter: 2006Q1

REPORT INFORMATION
  Report Type: 
  Country: None (occurrence: None)
  Receive Date: 20060213
  Receipt Date: 20060202
  Transmission Date: 20060701
  Serious: Yes (Death, Other)
  Sender: FDA-Public Use
  Company Number: 220720

PATIENT
  Age: 56 Year
  Sex: Male

DRUGS (5)
  1. MABTHERA [Suspect]
     Dosage: 700 MG,
     Dates: start: 20050802, end: 20051004
  2. CYCLOPHOSPHAMIDE [Concomitant]
  3. DELTISON (PREDNISONE) [Concomitant]
  4. ONCOVIN [Concomitant]
  5. DOXORUBICIN HCL [Concomitant]

REACTIONS (1)
  - HEPATITIS [None]
